FAERS Safety Report 7005341-X (Version None)
Quarter: 2010Q3

REPORT INFORMATION
  Report Type: 
  Country: None (occurrence: None)
  Receive Date: 20100921
  Receipt Date: 20100913
  Transmission Date: 20110219
  Serious: Yes (Hospitalization)
  Sender: FDA-Public Use
  Company Number: FR-JNJFOC-20100905106

PATIENT
  Sex: Male

DRUGS (11)
  1. HALDOL [Suspect]
     Indication: ABNORMAL BEHAVIOUR
     Route: 048
  2. ALPRAZOLAM [Suspect]
     Indication: PRODUCT USED FOR UNKNOWN INDICATION
     Route: 048
  3. ZOLPIDEM [Suspect]
     Indication: PRODUCT USED FOR UNKNOWN INDICATION
     Route: 048
  4. SEROPLEX [Concomitant]
     Route: 065
  5. MOLSIDOMINE [Concomitant]
     Route: 065
  6. KREDEX [Concomitant]
     Route: 065
  7. SIMVASTATIN [Concomitant]
     Route: 065
  8. ENALAPRIL [Concomitant]
     Route: 065
  9. FLUINDIONE [Concomitant]
     Route: 065
  10. FUROSEMIDE [Concomitant]
     Route: 065
  11. KETUM [Concomitant]
     Route: 065

REACTIONS (6)
  - BLOOD CREATININE INCREASED [None]
  - BONE PAIN [None]
  - DISORIENTATION [None]
  - FALL [None]
  - INJURY [None]
  - MOUTH HAEMORRHAGE [None]
